FAERS Safety Report 21312113 (Version 1)
Quarter: 2022Q3

REPORT INFORMATION
  Report Type: Spontaneous
  Country: US (occurrence: None)
  Receive Date: 20220909
  Receipt Date: 20220909
  Transmission Date: 20221027
  Serious: No
  Sender: FDA-Public Use
  Company Number: US-ARIS GLOBAL-202204-0681

PATIENT
  Age: 51 Year
  Sex: Female
  Weight: 68.100 kg

DRUGS (7)
  1. OXERVATE [Suspect]
     Active Substance: CENEGERMIN-BKBJ
     Indication: Neurotrophic keratopathy
     Route: 047
     Dates: start: 20220411
  2. REFRESH CLASSIC [Concomitant]
     Active Substance: POLYVINYL ALCOHOL\POVIDONE
  3. PRAVASTATIN SODIUM [Concomitant]
     Active Substance: PRAVASTATIN SODIUM
  4. VITAMINS [Concomitant]
     Active Substance: VITAMINS
  5. VITAMIN D2 [Concomitant]
     Active Substance: ERGOCALCIFEROL
  6. VITAMIN B12 [Concomitant]
     Active Substance: CYANOCOBALAMIN
  7. LEVOXYL [Concomitant]
     Active Substance: LEVOTHYROXINE SODIUM

REACTIONS (10)
  - Eye irritation [Unknown]
  - Photophobia [Unknown]
  - Ocular discomfort [Unknown]
  - Lacrimation increased [Unknown]
  - Eye irritation [Unknown]
  - Swelling of eyelid [Unknown]
  - Ocular discomfort [Unknown]
  - Headache [Unknown]
  - Eye pain [Unknown]
  - Therapy interrupted [Unknown]

NARRATIVE: CASE EVENT DATE: 20220401
